FAERS Safety Report 8543482-6 (Version None)
Quarter: 2012Q2

REPORT INFORMATION
  Report Type: 
  Country: None (occurrence: None)
  Receive Date: 20120412
  Receipt Date: 20090401
  Transmission Date: 20120825
  Serious: Yes (Disabling, Other)
  Sender: FDA-Public Use
  Company Number: PHEH2007US02887

PATIENT
  Sex: Female

DRUGS (20)
  1. AMOXICILLIN [Concomitant]
  2. NAVELBINE ^ASTA MEDICA^ (VINORELBINE DITARTRATE) [Concomitant]
  3. AVASTIN [Concomitant]
  4. ZOMETA [Suspect]
     Indication: METASTASES TO BONE
     Dosage: 4MG EVERY 4 WEEKS
     Dates: end: 20060601
  5. METROGEL [Concomitant]
  6. AMBIEN [Concomitant]
  7. PROMETHAZINE [Concomitant]
  8. ATENOLOL [Concomitant]
  9. NEUPOGEN [Concomitant]
  10. FLONASE [Concomitant]
  11. MINOCYCLINE HCL [Concomitant]
  12. AZITHROMYCIN [Concomitant]
  13. LORAZEPAM [Concomitant]
  14. PROCRIT [Concomitant]
  15. LISINOPRIL [Concomitant]
  16. TAXOL [Concomitant]
  17. AREDIA [Suspect]
     Dosage: 90MG
     Dates: start: 20050101
  18. AMOXICILLIN SODIUM W/CLAVULANATE POTASSIUM (AMOXICILLIN SODIUM, CLAVUL [Concomitant]
  19. DEXAMETHASONE SODIUM PHOSPHATE [Concomitant]
  20. CLINDAMYCIN HYDROCHLORIDE [Concomitant]

REACTIONS (8)
  - ANXIETY [None]
  - TOOTH EXTRACTION [None]
  - PAIN [None]
  - BONE DISORDER [None]
  - IMPAIRED HEALING [None]
  - OSTEONECROSIS [None]
  - GENERAL PHYSICAL HEALTH DETERIORATION [None]
  - DECREASED INTEREST [None]
